FAERS Safety Report 7075348-5 (Version None)
Quarter: 2010Q4

REPORT INFORMATION
  Report Type: 
  Country: None (occurrence: None)
  Receive Date: 20101030
  Receipt Date: 20100831
  Transmission Date: 20110411
  Serious: No
  Sender: FDA-Public Use
  Company Number: US-WYE-H17089210

PATIENT

DRUGS (1)
  1. PROTONIX [Suspect]
     Dosage: UNKNOWN

REACTIONS (3)
  - DEVICE OCCLUSION [None]
  - INCORRECT DOSE ADMINISTERED [None]
  - WRONG TECHNIQUE IN DRUG USAGE PROCESS [None]
